FAERS Safety Report 7818963-0 (Version None)
Quarter: 2011Q4

REPORT INFORMATION
  Report Type: 
  Country: None (occurrence: None)
  Receive Date: 20111018
  Receipt Date: 20111007
  Transmission Date: 20120403
  Serious: Yes (Other)
  Sender: FDA-Public Use
  Company Number: DK-JNJFOC-20111004432

PATIENT
  Sex: Female

DRUGS (4)
  1. ASACOL [Concomitant]
     Indication: COLITIS ULCERATIVE
     Route: 065
  2. VITAMIN TAB [Concomitant]
     Route: 065
  3. REMICADE [Suspect]
     Indication: COLITIS ULCERATIVE
     Dosage: DOSE STRENGTH: 100MG
     Route: 042
     Dates: start: 20110412, end: 20110922
  4. UNIKALK FORTE [Concomitant]
     Route: 065

REACTIONS (2)
  - OROPHARYNGEAL BLISTERING [None]
  - INFUSION RELATED REACTION [None]
